FAERS Safety Report 5411925-2 (Version None)
Quarter: 2007Q3

REPORT INFORMATION
  Report Type: 
  Country: None (occurrence: None)
  Receive Date: 20070813
  Receipt Date: 20070730
  Transmission Date: 20080115
  Serious: Yes (Other)
  Sender: FDA-Public Use
  Company Number: ES-ELI_LILLY_AND_COMPANY-ES200707007059

PATIENT
  Age: 70 Year
  Sex: Female

DRUGS (2)
  1. XIGRIS [Suspect]
     Dosage: UNK, UNKNOWN
     Route: 065
  2. XIGRIS [Suspect]
     Dosage: UNK, UNKNOWN
     Route: 065
     Dates: end: 20070731

REACTIONS (1)
  - KAOLIN CEPHALIN CLOTTING TIME PROLONGED [None]
